FAERS Safety Report 15101702 (Version 2)
Quarter: 2018Q4

REPORT INFORMATION
  Report Type: Report from Study
  Country: US (occurrence: US)
  Receive Date: 20180703
  Receipt Date: 20181018
  Transmission Date: 20190204
  Serious: Yes (Hospitalization, Other)
  Sender: FDA-Public Use
  Company Number: US-BAYER-2018-116302

PATIENT
  Age: 96 Year
  Sex: Male

DRUGS (30)
  1. GLUCOSE [Concomitant]
     Active Substance: DEXTROSE
     Dosage: 16-32 G
     Route: 048
  2. POLYETHYLENE GLYCOL [Concomitant]
     Active Substance: POLYETHYLENE GLYCOLS
     Dosage: 17 G DAILY
     Route: 048
  3. XOFIGO [Suspect]
     Active Substance: RADIUM RA-223 DICHLORIDE
     Indication: HORMONE-REFRACTORY PROSTATE CANCER
     Dosage: 99.60 ?CI, Q4WK
     Route: 042
     Dates: start: 20180430
  4. ALBUTEROL. [Concomitant]
     Active Substance: ALBUTEROL
     Dosage: 2.5 MG Q4N
  5. TRAVATAN [Concomitant]
     Active Substance: TRAVOPROST
     Dosage: 0.004 %
  6. GLUCOSAMINE [Concomitant]
     Active Substance: GLUCOSAMINE
  7. MELATONIN [Concomitant]
     Active Substance: MELATONIN
     Dosage: 300 MCG
  8. TIMOLOL. [Concomitant]
     Active Substance: TIMOLOL
     Dosage: 0.25 %
  9. ACETAMINOPHEN. [Concomitant]
     Active Substance: ACETAMINOPHEN
     Dosage: 650 MG, UNK
     Route: 048
     Dates: end: 20180531
  10. VANCOMYCIN [Concomitant]
     Active Substance: VANCOMYCIN
     Dosage: 1 G DAILY
     Route: 042
  11. ALEVE [Concomitant]
     Active Substance: NAPROXEN SODIUM
     Dosage: 220 MG
  12. VITAMIN B12 [Concomitant]
     Active Substance: CYANOCOBALAMIN
     Dosage: 1000 MCG
  13. ENOXAPARIN [Concomitant]
     Active Substance: ENOXAPARIN
     Dosage: 40 MG DAILY
     Route: 058
  14. LOPERAMIDE [Concomitant]
     Active Substance: LOPERAMIDE
     Dosage: 2 MG
  15. PRILOSEC [Concomitant]
     Active Substance: OMEPRAZOLE MAGNESIUM
     Dosage: 20 MG
  16. MAALOX [CALCIUM CARBONATE] [Concomitant]
     Dosage: 30 ML Q4H
  17. AZTREONAM. [Concomitant]
     Active Substance: AZTREONAM
     Dosage: 1 G Q8H
     Route: 042
  18. MORPHINE [Concomitant]
     Active Substance: MORPHINE
     Dosage: 1-2 MG
     Route: 042
  19. SENOKOT S [DOCUSATE SODIUM,SENNOSIDE A+B] [Concomitant]
     Dosage: 1 TABLET BID
     Route: 042
  20. MULTIVITAMIN [Concomitant]
     Active Substance: VITAMINS
     Route: 048
  21. PROSCAR [Concomitant]
     Active Substance: FINASTERIDE
     Dosage: 5 MG
  22. VITAMIN D3 [Concomitant]
     Active Substance: CHOLECALCIFEROL
     Dosage: 2000 UNIT
  23. FINASTERIDE. [Concomitant]
     Active Substance: FINASTERIDE
     Dosage: 5 MG DAILY
  24. XOFIGO [Suspect]
     Active Substance: RADIUM RA-223 DICHLORIDE
     Indication: METASTASES TO BONE
  25. COLECALCIFEROL [Concomitant]
     Active Substance: CHOLECALCIFEROL
     Dosage: 1000 UNIT DAILY
     Route: 048
  26. CYANOCOBALAMIN. [Concomitant]
     Active Substance: CYANOCOBALAMIN
     Dosage: 1000 MG DAILY
     Route: 048
  27. DEXTROSE. [Concomitant]
     Active Substance: DEXTROSE
     Dosage: 25 ML
     Route: 042
  28. ONDASETRON [Concomitant]
     Active Substance: ONDANSETRON
     Dosage: 4 MG Q8H
     Route: 042
  29. PANTOPRAZOLE [Concomitant]
     Active Substance: PANTOPRAZOLE
     Dosage: 40 MG DAILY
  30. XTANDI [Concomitant]
     Active Substance: ENZALUTAMIDE

REACTIONS (15)
  - Hospitalisation [None]
  - Feeling hot [None]
  - Confusional state [None]
  - Atelectasis [None]
  - Musculoskeletal chest pain [Not Recovered/Not Resolved]
  - Metastasis [None]
  - Hepatic steatosis [None]
  - Malaise [None]
  - Asthenia [None]
  - Hypophagia [None]
  - Lymphadenopathy [None]
  - Urinary incontinence [None]
  - Pain [None]
  - Wheelchair user [None]
  - Irritability [None]
